FAERS Safety Report 8682027 (Version 4)
Quarter: 2013Q4

REPORT INFORMATION
  Report Type: Spontaneous
  Country: US (occurrence: US)
  Receive Date: 20120725
  Receipt Date: 20131101
  Transmission Date: 20140711
  Serious: No
  Sender: FDA-Public Use
  Company Number: US-009507513-2012SP036899

PATIENT
  Age: 51 Year
  Sex: Female

DRUGS (2)
  1. NASONEX [Suspect]
     Indication: HYPERSENSITIVITY
     Dosage: 2 DF, QD
     Route: 045
     Dates: start: 2004
  2. HYOSCYAMINE [Concomitant]

REACTIONS (3)
  - Dizziness [Recovering/Resolving]
  - Vertigo [Recovering/Resolving]
  - Incorrect dose administered [Unknown]
